FAERS Safety Report 23048170 (Version 1)
Quarter: 2023Q4

REPORT INFORMATION
  Report Type: Spontaneous
  Country: US (occurrence: US)
  Receive Date: 20231010
  Receipt Date: 20231010
  Transmission Date: 20240110
  Serious: No
  Sender: FDA-Public Use
  Company Number: US-SUN PHARMACEUTICAL INDUSTRIES LTD-2023R1-397665

PATIENT
  Sex: Female

DRUGS (2)
  1. CEQUA [Suspect]
     Active Substance: CYCLOSPORINE
     Indication: Trichiasis
     Dosage: UNK
     Route: 065
  2. CEQUA [Suspect]
     Active Substance: CYCLOSPORINE
     Indication: Blepharitis

REACTIONS (3)
  - Burning sensation [Unknown]
  - Disease progression [Unknown]
  - Eye pruritus [Unknown]
